FAERS Safety Report 9157022 (Version 4)
Quarter: 2013Q2

REPORT INFORMATION
  Report Type: Spontaneous
  Country: US (occurrence: US)
  Receive Date: 20130312
  Receipt Date: 20130517
  Transmission Date: 20140414
  Serious: No
  Sender: FDA-Public Use
  Company Number: US-PFIZER INC-2013081842

PATIENT
  Age: 64 Year
  Sex: Female
  Weight: 78.61 kg

DRUGS (6)
  1. CELEBREX [Suspect]
     Indication: INTERVERTEBRAL DISC DISPLACEMENT
     Dosage: 200 MG, 1X/DAY
     Route: 048
     Dates: start: 20130304, end: 20130307
  2. PREMARIN [Concomitant]
     Dosage: 0.625 MG, UNK
  3. SYNTHROID [Concomitant]
     Dosage: 112 UG, UNK
  4. MOBIC [Concomitant]
     Dosage: 7.5 MG, UNK
  5. KLOR-CON [Concomitant]
     Indication: HYPERTENSION
     Dosage: 20 MEQ, UNK
  6. MAXZIDE [Concomitant]
     Indication: HYPOTHYROIDISM
     Dosage: 75- 50 MG TABLET

REACTIONS (6)
  - Hypersensitivity [Unknown]
  - Rash erythematous [Recovered/Resolved]
  - Pain [Recovered/Resolved]
  - Rash pruritic [Recovered/Resolved]
  - Local swelling [Unknown]
  - Lip swelling [Unknown]
